FAERS Safety Report 8361460-7 (Version None)
Quarter: 2012Q2

REPORT INFORMATION
  Report Type: 
  Country: None (occurrence: None)
  Receive Date: 20120514
  Receipt Date: 20120427
  Transmission Date: 20120825
  Serious: Yes (Hospitalization)
  Sender: FDA-Public Use
  Company Number: TPA2011A08777

PATIENT
  Age: 83 Year
  Sex: Female

DRUGS (6)
  1. RABEPRAZOLE SODIUM [Concomitant]
  2. WARFARIN SODIUM [Concomitant]
  3. CALBLOCK (AZELNIDIPINE) [Concomitant]
  4. FEBURIC (FEBUXOSTAT) [Suspect]
     Indication: HYPERURICAEMIA
     Dosage: 20 MG (20 MG, 1 IN 1 D), PER ORAL
     Route: 048
     Dates: start: 20111126, end: 20111207
  5. CARVEDILOL [Concomitant]
  6. LASIX [Concomitant]

REACTIONS (2)
  - RENAL IMPAIRMENT [None]
  - ANTINEUTROPHIL CYTOPLASMIC ANTIBODY INCREASED [None]
